FAERS Safety Report 6007075-7 (Version None)
Quarter: 2008Q4

REPORT INFORMATION
  Report Type: 
  Country: None (occurrence: None)
  Receive Date: 20081217
  Receipt Date: 20080104
  Transmission Date: 20090506
  Serious: No
  Sender: FDA-Public Use
  Company Number: US-ASTRAZENECA-2008UW00332

PATIENT
  Age: 45 Year
  Sex: Female
  Weight: 68 kg

DRUGS (1)
  1. CRESTOR [Suspect]
     Indication: BLOOD CHOLESTEROL INCREASED
     Dates: start: 20071201

REACTIONS (5)
  - ARTHRALGIA [None]
  - ARTHROPATHY [None]
  - HYPOAESTHESIA [None]
  - PARAESTHESIA [None]
  - TINNITUS [None]
